FAERS Safety Report 5719009-0 (Version None)
Quarter: 2008Q2

REPORT INFORMATION
  Report Type: 
  Country: None (occurrence: None)
  Receive Date: 20080423
  Receipt Date: 20080410
  Transmission Date: 20081010
  Serious: Yes (Other)
  Sender: FDA-Public Use
  Company Number: 2008AL002254

PATIENT
  Age: 33 Year
  Sex: Female

DRUGS (2)
  1. FLUOXETINE [Suspect]
     Indication: ANXIETY
     Dosage: 20 MG;PO
     Route: 048
     Dates: start: 20071128, end: 20071221
  2. TRANEXAMIC ACID [Concomitant]

REACTIONS (1)
  - TRISMUS [None]
